FAERS Safety Report 25648472 (Version 1)
Quarter: 2025Q3

REPORT INFORMATION
  Report Type: Spontaneous
  Country: TW (occurrence: TW)
  Receive Date: 20250806
  Receipt Date: 20250806
  Transmission Date: 20251021
  Serious: Yes (Hospitalization, Other)
  Sender: GILEAD
  Company Number: TW-GILEAD-2025-0722609

PATIENT
  Age: 78 Year
  Sex: Female
  Weight: 55 kg

DRUGS (9)
  1. GENVOYA [Suspect]
     Active Substance: COBICISTAT\ELVITEGRAVIR\EMTRICITABINE\TENOFOVIR ALAFENAMIDE FUMARATE
     Indication: Hepatitis B
     Dosage: 25 MG, QD
     Route: 048
     Dates: start: 20241114, end: 20250505
  2. GENVOYA [Suspect]
     Active Substance: COBICISTAT\ELVITEGRAVIR\EMTRICITABINE\TENOFOVIR ALAFENAMIDE FUMARATE
     Dosage: 25 MG, QD
     Route: 048
     Dates: start: 20250708, end: 20250717
  3. ACETAMINOPHEN [Concomitant]
     Active Substance: ACETAMINOPHEN
     Indication: Analgesic therapy
     Dosage: 500.0 MG EVERY 6.0 HOURS
     Route: 048
     Dates: start: 20250715, end: 20250720
  4. SUCRALFATE [Concomitant]
     Active Substance: SUCRALFATE
     Indication: Gastritis
     Dosage: 100 MG, BIDONCE EVERY 0.5  DAYS
     Route: 048
     Dates: start: 20250506, end: 20250708
  5. FAMOTIDINE [Concomitant]
     Active Substance: FAMOTIDINE
     Indication: Gastritis
     Dosage: 20.0 MG, ONCE  EVERY 0.5 DAYS
     Route: 048
     Dates: start: 20250506, end: 20250708
  6. MEFENAMIC ACID [Concomitant]
     Active Substance: MEFENAMIC ACID
     Indication: Analgesic therapy
     Dosage: 250.0MG ONCE EVERY 0.25  DAYS
     Route: 048
     Dates: start: 20250708, end: 20250714
  7. METHOCARBAMOL [Concomitant]
     Active Substance: METHOCARBAMOL
     Indication: Analgesic therapy
     Dosage: 500.0 MG ONCE EVERY  0.5 DAYS
     Route: 048
     Dates: start: 20250708, end: 20250714
  8. INSULIN PORK\INSULIN PURIFIED PORK [Concomitant]
     Active Substance: INSULIN PORK\INSULIN PURIFIED PORK
     Indication: Hyperglycaemia
     Route: 041
     Dates: start: 20250715, end: 20250717
  9. LIVALO [Concomitant]
     Active Substance: PITAVASTATIN CALCIUM
     Indication: Hyperlipidaemia
     Dosage: 2.0 MG ONCE EVERY  1.0 DAYS
     Route: 048
     Dates: start: 20250715, end: 20250724

REACTIONS (1)
  - Pancreatitis [Recovered/Resolved]

NARRATIVE: CASE EVENT DATE: 20250506
